FAERS Safety Report 14837370 (Version 2)
Quarter: 2018Q2

REPORT INFORMATION
  Report Type: Report from Study
  Country: ES (occurrence: ES)
  Receive Date: 20180502
  Receipt Date: 20180620
  Transmission Date: 20180711
  Serious: Yes (Hospitalization, Other)
  Sender: FDA-Public Use
  Company Number: ES-ASPEN-GLO2018ES004025

PATIENT
  Age: 9 Month
  Sex: Female
  Weight: 6.7 kg

DRUGS (6)
  1. TIOGUANINA ASPEN [Suspect]
     Active Substance: THIOGUANINE ANHYDROUS
     Indication: ACUTE LYMPHOCYTIC LEUKAEMIA
     Dosage: 16 MG, QD
     Route: 048
     Dates: start: 20180104, end: 20180106
  2. CITARABINA [Suspect]
     Active Substance: CYTARABINE
     Indication: ACUTE LYMPHOCYTIC LEUKAEMIA
     Dosage: 19.7 MG, QD
     Route: 042
     Dates: start: 20180104, end: 20180106
  3. ZOVIRAX [Concomitant]
     Active Substance: ACYCLOVIR
     Indication: PROPHYLAXIS
     Dosage: 64 MG, TID
     Route: 048
     Dates: start: 20170606
  4. COLECALCIFEROL [Concomitant]
     Active Substance: CHOLECALCIFEROL
     Indication: PROPHYLAXIS
     Dosage: 396 IU, QD
     Route: 048
     Dates: start: 20170606
  5. DEXAMETASONA [Suspect]
     Active Substance: DEXAMETHASONE
     Indication: ACUTE LYMPHOCYTIC LEUKAEMIA
     Dosage: 1 MG, BID
     Route: 048
     Dates: start: 20171221, end: 20180111
  6. SEPTRIN PAEDIATRIC [Concomitant]
     Active Substance: SULFAMETHOXAZOLE\TRIMETHOPRIM
     Indication: PROPHYLAXIS
     Dosage: 1.5 ML
     Route: 048
     Dates: start: 20170606

REACTIONS (3)
  - Otitis media [Recovered/Resolved]
  - Influenza [Recovered/Resolved]
  - Agranulocytosis [Recovered/Resolved]

NARRATIVE: CASE EVENT DATE: 20180106
